FAERS Safety Report 7374905-6 (Version None)
Quarter: 2011Q1

REPORT INFORMATION
  Report Type: 
  Country: None (occurrence: None)
  Receive Date: 20110310
  Receipt Date: 20110228
  Transmission Date: 20110831
  Serious: Yes (Other)
  Sender: FDA-Public Use
  Company Number: 11-010

PATIENT
  Age: 6 Year
  Sex: Female

DRUGS (8)
  1. GRASS MIX 5 (KORT + SV) [Suspect]
     Indication: IMMUNE SYSTEM DISORDER
     Dosage: 100,000 BAU
     Dates: start: 20100709, end: 20110110
  2. FLOVENT [Concomitant]
  3. OAK TREE [Suspect]
     Indication: IMMUNE SYSTEM DISORDER
     Dosage: 1:10 W/V
     Dates: start: 20100709, end: 20110110
  4. ENGLISH PLANTAIN [Suspect]
     Indication: IMMUNE SYSTEM DISORDER
     Dosage: 1:10 W/V
     Dates: start: 20100709, end: 20110110
  5. BIRCH TREE [Suspect]
     Indication: IMMUNE SYSTEM DISORDER
     Dosage: 1:10 W/V
     Dates: start: 20100709, end: 20110110
  6. SHORT RAGWEED [Suspect]
     Indication: IMMUNE SYSTEM DISORDER
     Dosage: 1:20 W/V
     Dates: start: 20100709, end: 20110110
  7. ELM TREE [Suspect]
     Indication: IMMUNE SYSTEM DISORDER
     Dosage: 1:20 W/V
     Dates: start: 20100709, end: 20110110
  8. RED MAPLE [Suspect]
     Indication: IMMUNE SYSTEM DISORDER
     Dosage: 1:10 W/V
     Dates: start: 20100709, end: 20110110

REACTIONS (1)
  - ANAPHYLACTIC REACTION [None]
